FAERS Safety Report 11191450 (Version 2)
Quarter: 2015Q3

REPORT INFORMATION
  Report Type: Spontaneous
  Country: US (occurrence: US)
  Receive Date: 20150616
  Receipt Date: 20150714
  Transmission Date: 20151125
  Serious: Yes (Other)
  Sender: FDA-Public Use
  Company Number: US-BEH-2015051692

PATIENT
  Sex: Female

DRUGS (1)
  1. HIZENTRA [Suspect]
     Active Substance: HUMAN IMMUNOGLOBULIN G
     Indication: PRODUCT USED FOR UNKNOWN INDICATION

REACTIONS (9)
  - Brain injury [Unknown]
  - Pneumonia [Unknown]
  - Contusion [Unknown]
  - Ehlers-Danlos syndrome [Unknown]
  - Fall [Unknown]
  - Tooth fracture [Unknown]
  - Haemorrhage [Unknown]
  - Tooth infection [Unknown]
  - Joint dislocation [Unknown]
